FAERS Safety Report 10681013 (Version 3)
Quarter: 2015Q3

REPORT INFORMATION
  Report Type: Spontaneous
  Country: US (occurrence: US)
  Receive Date: 20141229
  Receipt Date: 20150819
  Transmission Date: 20151125
  Serious: Yes (Hospitalization, Disabling)
  Sender: FDA-Public Use
  Company Number: US-GILEAD-2014-0128936

PATIENT
  Age: 69 Year
  Sex: Female
  Weight: 65.77 kg

DRUGS (9)
  1. ZYLOPRIM [Concomitant]
     Active Substance: ALLOPURINOL
  2. LETAIRIS [Suspect]
     Active Substance: AMBRISENTAN
     Indication: PULMONARY HYPERTENSION
     Dosage: 5 MG, QD
     Route: 048
     Dates: start: 20141106
  3. OSCAL [Concomitant]
     Active Substance: CALCIUM CARBONATE
  4. VENTAVIS [Suspect]
     Active Substance: ILOPROST
     Indication: PRODUCT USED FOR UNKNOWN INDICATION
     Dosage: 20 UNKNOWN, UNK
     Route: 055
  5. LIPITOR [Concomitant]
     Active Substance: ATORVASTATIN CALCIUM
  6. COREG [Concomitant]
     Active Substance: CARVEDILOL
  7. VITAMIN D2 [Concomitant]
     Active Substance: ERGOCALCIFEROL
  8. SILDENAFIL. [Concomitant]
     Active Substance: SILDENAFIL
  9. TAMBOCOR [Concomitant]
     Active Substance: FLECAINIDE ACETATE

REACTIONS (6)
  - Dyspnoea exertional [Unknown]
  - Rhinitis [Unknown]
  - Oedema peripheral [Unknown]
  - Infective exacerbation of bronchiectasis [Unknown]
  - Fatigue [Unknown]
  - Oedema [Unknown]
